FAERS Safety Report 8880928 (Version 2)
Quarter: 2012Q4

REPORT INFORMATION
  Report Type: 
  Country: DE (occurrence: DE)
  Receive Date: 20121101
  Receipt Date: 20121128
  Transmission Date: 20130627
  Serious: Yes (Life-Threatening, Hospitalization)
  Sender: FDA-Public Use
  Company Number: DE-BRISTOL-MYERS SQUIBB COMPANY-17065525

PATIENT
  Age: 22 Year
  Sex: Male
  Weight: 65 kg

DRUGS (5)
  1. ABILIFY [Suspect]
     Indication: SCHIZOPHRENIA, PARANOID TYPE
     Route: 048
     Dates: start: 201206
  2. LEPONEX [Suspect]
     Indication: SCHIZOPHRENIA, PARANOID TYPE
     Route: 048
     Dates: start: 201207
  3. CLOZAPINE [Concomitant]
  4. PANTOPRAZOLE [Concomitant]
  5. PIRENZEPINE [Concomitant]

REACTIONS (2)
  - Cerebral haemorrhage [Recovering/Resolving]
  - Hemiplegia [Recovering/Resolving]
